FAERS Safety Report 4349974-8 (Version None)
Quarter: 2004Q2

REPORT INFORMATION
  Report Type: 
  Country: None (occurrence: None)
  Receive Date: 20040426
  Receipt Date: 20030610
  Transmission Date: 20050107
  Serious: Yes (Other)
  Sender: FDA-Public Use
  Company Number: 200314130US

PATIENT
  Age: 25 Year
  Sex: Female
  Weight: 63.6 kg

DRUGS (2)
  1. ALLEGRA [Suspect]
     Indication: ANAPHYLACTIC REACTION
     Dosage: 30 MG
     Route: 048
  2. ALLEGRA [Suspect]
     Indication: ANAPHYLACTIC REACTION
     Dosage: 30 MG
     Route: 048

REACTIONS (6)
  - ANAPHYLACTIC REACTION [None]
  - DYSPNOEA [None]
  - ERYTHEMA [None]
  - PRURITUS [None]
  - THROAT TIGHTNESS [None]
  - URTICARIA [None]
